FAERS Safety Report 19742309 (Version 1)
Quarter: 2021Q3

REPORT INFORMATION
  Report Type: Spontaneous
  Country: US (occurrence: US)
  Receive Date: 20210824
  Receipt Date: 20210824
  Transmission Date: 20211014
  Serious: No
  Sender: FDA-Public Use
  Company Number: US-AMGEN-USASP2021128879

PATIENT
  Age: 56 Year
  Sex: Female

DRUGS (3)
  1. TRIPTAN [OXITRIPTAN] [Concomitant]
     Active Substance: OXITRIPTAN
  2. REPATHA [Suspect]
     Active Substance: EVOLOCUMAB
     Indication: BLOOD CHOLESTEROL INCREASED
     Dosage: 140 MILLIGRAM, Q2WK
     Route: 065
  3. TRULICITY [Concomitant]
     Active Substance: DULAGLUTIDE

REACTIONS (2)
  - Device difficult to use [Unknown]
  - Headache [Unknown]

NARRATIVE: CASE EVENT DATE: 20210819
